FAERS Safety Report 5601458-2 (Version None)
Quarter: 2008Q1

REPORT INFORMATION
  Report Type: 
  Country: None (occurrence: None)
  Receive Date: 20080124
  Receipt Date: 20080115
  Transmission Date: 20080703
  Serious: Yes (Other)
  Sender: FDA-Public Use
  Company Number: JP-ASTRAZENECA-2007AP08152

PATIENT
  Sex: Female

DRUGS (2)
  1. PULMICORT [Suspect]
     Indication: ASTHMA
     Dosage: DOSE UNKNOWN
     Route: 055
  2. THEOPHYLLINE [Concomitant]
     Indication: ASTHMA

REACTIONS (2)
  - ABORTION SPONTANEOUS [None]
  - DRUG EXPOSURE DURING PREGNANCY [None]
